FAERS Safety Report 5452165-0 (Version None)
Quarter: 2007Q3

REPORT INFORMATION
  Report Type: 
  Country: None (occurrence: None)
  Receive Date: 20070914
  Receipt Date: 20070913
  Transmission Date: 20080115
  Serious: Yes (Hospitalization)
  Sender: FDA-Public Use
  Company Number: PHNU2007DE03143

PATIENT
  Sex: Male

DRUGS (1)
  1. TRILEPTAL [Suspect]
     Route: 048

REACTIONS (1)
  - COMA [None]
